FAERS Safety Report 8463270-9 (Version None)
Quarter: 2012Q2

REPORT INFORMATION
  Report Type: 
  Country: None (occurrence: None)
  Receive Date: 20120625
  Receipt Date: 20120614
  Transmission Date: 20120825
  Serious: Yes (Other)
  Sender: FDA-Public Use
  Company Number: JP-VERTEX PHARMACEUTICALS INC.-AE-2012-008784

PATIENT
  Age: 64 Year
  Sex: Female

DRUGS (6)
  1. REBETOL [Concomitant]
     Indication: HEPATITIS C
     Route: 048
     Dates: start: 20111209, end: 20120216
  2. REBETOL [Concomitant]
     Route: 048
     Dates: start: 20120309, end: 20120312
  3. REBETOL [Concomitant]
     Route: 048
     Dates: start: 20120217, end: 20120308
  4. REBETOL [Concomitant]
     Route: 048
     Dates: start: 20120218, end: 20120308
  5. TELAVIC (TELAPREVIR) [Suspect]
     Indication: HEPATITIS C
     Route: 048
     Dates: start: 20111209, end: 20120302
  6. PEG-INTRON [Concomitant]
     Indication: HEPATITIS C
     Route: 058
     Dates: start: 20111209, end: 20120323

REACTIONS (1)
  - RETINOPATHY [None]
